FAERS Safety Report 17117505 (Version 1)
Quarter: 2019Q4

REPORT INFORMATION
  Report Type: Spontaneous
  Country: CN (occurrence: CN)
  Receive Date: 20191205
  Receipt Date: 20191205
  Transmission Date: 20200122
  Serious: Yes (Other)
  Sender: FDA-Public Use
  Company Number: CN-GUERBET-CN-20190180

PATIENT
  Age: 38 Year
  Sex: Female

DRUGS (1)
  1. OPTIRAY 350 [Suspect]
     Active Substance: IOVERSOL
     Indication: COMPUTERISED TOMOGRAM
     Route: 065

REACTIONS (7)
  - Extravasation [Recovered/Resolved]
  - Skin warm [Recovered/Resolved]
  - Hypoaesthesia [Recovered/Resolved]
  - Injection site pain [Recovered/Resolved]
  - Blister [Recovered/Resolved]
  - Injection site swelling [Recovered/Resolved]
  - Skin discolouration [Recovered/Resolved]
